FAERS Safety Report 18990041 (Version 1)
Quarter: 2021Q1

REPORT INFORMATION
  Report Type: Spontaneous
  Country: DE (occurrence: DE)
  Receive Date: 20210310
  Receipt Date: 20210310
  Transmission Date: 20210420
  Serious: Yes (Hospitalization)
  Sender: FDA-Public Use
  Company Number: DE-JNJFOC-20210315039

PATIENT
  Age: 28 Month
  Sex: Male
  Weight: 10 kg

DRUGS (1)
  1. HALOPERIDOL. [Suspect]
     Active Substance: HALOPERIDOL
     Indication: ACCIDENTAL EXPOSURE TO PRODUCT BY CHILD
     Route: 048
     Dates: start: 20200113, end: 20200113

REACTIONS (5)
  - Accidental exposure to product by child [Recovered/Resolved]
  - Disturbance in attention [Recovered/Resolved]
  - Extrapyramidal disorder [Recovered/Resolved]
  - Product administration error [Recovered/Resolved]
  - Dyskinesia [Recovered/Resolved]

NARRATIVE: CASE EVENT DATE: 20200113
